FAERS Safety Report 11432419 (Version 2)
Quarter: 2015Q3

REPORT INFORMATION
  Report Type: Spontaneous
  Country: US (occurrence: US)
  Receive Date: 20150828
  Receipt Date: 20150909
  Transmission Date: 20151125
  Serious: Yes (Hospitalization)
  Sender: FDA-Public Use
  Company Number: US-CLARIS PHARMASERVICES-1041472

PATIENT
  Age: 76 Year
  Sex: Female

DRUGS (2)
  1. IRON SUCROSE [Suspect]
     Active Substance: IRON SUCROSE
     Route: 042
  2. LEVOFLOXACIN. [Suspect]
     Active Substance: LEVOFLOXACIN
     Indication: DYSPNOEA
     Route: 042
     Dates: start: 20150819, end: 20150822

REACTIONS (5)
  - Rash generalised [Recovered/Resolved]
  - Injection site erythema [None]
  - Injection site pruritus [None]
  - Pruritus [Recovered/Resolved]
  - Injection site rash [None]

NARRATIVE: CASE EVENT DATE: 20150822
